FAERS Safety Report 7249147 (Version 2)
Quarter: 2013Q1

REPORT INFORMATION
  Report Type: Spontaneous
  Country: US (occurrence: US)
  Receive Date: 20100119
  Receipt Date: 20130226
  Transmission Date: 20140127
  Serious: Yes (Other)
  Sender: FDA-Public Use
  Company Number: US-JNJFOC-20090809576

PATIENT
  Sex: Female
  Weight: 68.04 kg

DRUGS (3)
  1. LEVAQUIN [Suspect]
     Indication: SINUSITIS
     Route: 065
  2. NASOCORT [Concomitant]
     Indication: RHINITIS
     Route: 065
  3. PREDNISONE [Concomitant]
     Indication: SINUSITIS
     Route: 065

REACTIONS (5)
  - Tendon rupture [Unknown]
  - Osteoarthritis [Unknown]
  - Ligament injury [Recovering/Resolving]
  - Rotator cuff syndrome [Unknown]
  - Tendonitis [Recovering/Resolving]
